FAERS Safety Report 14544958 (Version 1)
Quarter: 2018Q1

REPORT INFORMATION
  Report Type: Spontaneous
  Country: US (occurrence: US)
  Receive Date: 20180216
  Receipt Date: 20180216
  Transmission Date: 20180509
  Serious: No
  Sender: FDA-Public Use
  Company Number: None

PATIENT
  Age: 62 Year
  Sex: Female
  Weight: 76.5 kg

DRUGS (16)
  1. SYNTHROID [Concomitant]
     Active Substance: LEVOTHYROXINE SODIUM
  2. ZOLOFT [Concomitant]
     Active Substance: SERTRALINE HYDROCHLORIDE
  3. COLACE [Concomitant]
     Active Substance: DOCUSATE SODIUM
  4. MVI [Concomitant]
     Active Substance: VITAMINS
  5. CRESTOR [Concomitant]
     Active Substance: ROSUVASTATIN CALCIUM
  6. ZANTAC [Concomitant]
     Active Substance: RANITIDINE HYDROCHLORIDE
  7. SUDAFED [Concomitant]
     Active Substance: PSEUDOEPHEDRINE HYDROCHLORIDE
  8. FISH OIL [Concomitant]
     Active Substance: FISH OIL
  9. PYRIDIUM [Concomitant]
     Active Substance: PHENAZOPYRIDINE
  10. VITAMIN D [Concomitant]
     Active Substance: CHOLECALCIFEROL
  11. RESTASIS [Concomitant]
     Active Substance: CYCLOSPORINE
  12. ALLEGRA [Concomitant]
     Active Substance: FEXOFENADINE HYDROCHLORIDE
  13. ZEPHREX-D [Suspect]
     Active Substance: PSEUDOEPHEDRINE HYDROCHLORIDE
     Indication: SINUS CONGESTION
     Dosage: ?          QUANTITY:24 TABLET(S);?
     Route: 048
     Dates: start: 20180103, end: 20180119
  14. CLONAZEPAM. [Concomitant]
     Active Substance: CLONAZEPAM
  15. PROTONIX [Concomitant]
     Active Substance: PANTOPRAZOLE SODIUM
  16. BABY ASA [Concomitant]
     Active Substance: ASPIRIN

REACTIONS (4)
  - Product substitution issue [None]
  - Pain in extremity [None]
  - Chest pain [None]
  - Gastrooesophageal reflux disease [None]

NARRATIVE: CASE EVENT DATE: 20180103
